FAERS Safety Report 9549529 (Version 1)
Quarter: 2013Q3

REPORT INFORMATION
  Report Type: Spontaneous
  Country: DE (occurrence: None)
  Receive Date: 20130919
  Receipt Date: 20130919
  Transmission Date: 20140515
  Serious: Yes (Other)
  Sender: FDA-Public Use
  Company Number: USA/GER/13/0034618

PATIENT
  Sex: Male

DRUGS (7)
  1. AMLODIPINE [Suspect]
     Indication: PRODUCT USED FOR UNKNOWN INDICATION
  2. RAMIPRIL [Suspect]
     Indication: PRODUCT USED FOR UNKNOWN INDICATION
  3. TORASEMIDE [Suspect]
     Indication: PRODUCT USED FOR UNKNOWN INDICATION
  4. GLIBENCLAMIDE [Suspect]
     Indication: DIABETES MELLITUS
     Dates: start: 201110
  5. NEXAVAR [Suspect]
     Indication: HEPATOCELLULAR CARCINOMA
     Dates: start: 20120110
  6. PROPRANOLOL [Suspect]
     Indication: PRODUCT USED FOR UNKNOWN INDICATION
  7. NOVAMINSULFON (METAMIZOLE SODIUM) [Suspect]
     Indication: PRODUCT USED FOR UNKNOWN INDICATION

REACTIONS (10)
  - Hypoglycaemia [None]
  - Somnolence [None]
  - Disorientation [None]
  - Drug interaction [None]
  - Neoplasm [None]
  - Ascites [None]
  - Hepatic cirrhosis [None]
  - Hepatorenal syndrome [None]
  - Hepatic encephalopathy [None]
  - Portal vein thrombosis [None]
